FAERS Safety Report 7297867-9 (Version None)
Quarter: 2011Q1

REPORT INFORMATION
  Report Type: 
  Country: None (occurrence: None)
  Receive Date: 20110217
  Receipt Date: 20101129
  Transmission Date: 20110831
  Serious: No
  Sender: FDA-Public Use
  Company Number: US-KINGPHARMUSA00001-K201001450

PATIENT
  Sex: Female

DRUGS (7)
  1. FLECTOR [Suspect]
     Indication: MUSCULOSKELETAL PAIN
  2. IBUPROFEN [Concomitant]
     Indication: PAIN
     Dosage: 800 MG, PRN
     Route: 048
  3. FLECTOR [Suspect]
     Indication: LUMBAR SPINAL STENOSIS
  4. METHOTREXATE [Concomitant]
  5. DARVOCET-N 100 [Concomitant]
  6. FLECTOR [Suspect]
     Indication: BACK PAIN
     Dosage: 1 PATCH, Q12H
     Route: 061
     Dates: start: 20101101
  7. PREDNISONE TAB [Concomitant]

REACTIONS (3)
  - PAIN IN EXTREMITY [None]
  - APPLICATION SITE PAIN [None]
  - PAIN [None]
